FAERS Safety Report 5072857-5 (Version None)
Quarter: 2006Q3

REPORT INFORMATION
  Report Type: 
  Country: None (occurrence: None)
  Receive Date: 20060802
  Receipt Date: 20060728
  Transmission Date: 20061208
  Serious: Yes (Death, Life-Threatening, Hospitalization)
  Sender: FDA-Public Use
  Company Number: HQWYE799212APR06

PATIENT
  Age: 56 Year
  Sex: Male

DRUGS (8)
  1. AMIODARONE HCL [Suspect]
     Indication: DILATATION VENTRICULAR
     Dosage: 100 MG 1X PER 1 DAY ORAL; 2 TABLET 1X PER 1 DAY ORAL
     Route: 048
     Dates: start: 20030918, end: 20030918
  2. AMIODARONE HCL [Suspect]
     Indication: VENTRICULAR ARRHYTHMIA
     Dosage: 100 MG 1X PER 1 DAY ORAL; 2 TABLET 1X PER 1 DAY ORAL
     Route: 048
     Dates: start: 20030918, end: 20030918
  3. AMIODARONE HCL [Suspect]
     Indication: DILATATION VENTRICULAR
     Dosage: 100 MG 1X PER 1 DAY ORAL; 2 TABLET 1X PER 1 DAY ORAL
     Route: 048
     Dates: end: 20060330
  4. AMIODARONE HCL [Suspect]
     Indication: VENTRICULAR ARRHYTHMIA
     Dosage: 100 MG 1X PER 1 DAY ORAL; 2 TABLET 1X PER 1 DAY ORAL
     Route: 048
     Dates: end: 20060330
  5. BLOPRESS (CANDESARTAN CILEXETIL) [Concomitant]
  6. LASIX [Concomitant]
  7. CARVEDILOL [Concomitant]
  8. MUCOSTA (REBAMIPIDE) [Concomitant]

REACTIONS (9)
  - CARDIAC FAILURE [None]
  - CEREBRAL ARTERY EMBOLISM [None]
  - CEREBRAL INFARCTION [None]
  - CONDITION AGGRAVATED [None]
  - GENERAL PHYSICAL HEALTH DETERIORATION [None]
  - INTERSTITIAL LUNG DISEASE [None]
  - PARALYSIS [None]
  - PULMONARY CONGESTION [None]
  - RESPIRATORY DISORDER [None]
